FAERS Safety Report 6904825-X (Version None)
Quarter: 2010Q3

REPORT INFORMATION
  Report Type: 
  Country: None (occurrence: None)
  Receive Date: 20100804
  Receipt Date: 20090720
  Transmission Date: 20110219
  Serious: No
  Sender: FDA-Public Use
  Company Number: US-PFIZER INC-2008020673

PATIENT
  Sex: Female
  Weight: 81.6 kg

DRUGS (19)
  1. LYRICA [Suspect]
     Indication: DIABETIC NEUROPATHY
     Dosage: 75 MG, 2X/DAY
     Route: 048
     Dates: start: 20080301, end: 20090501
  2. LYRICA [Suspect]
     Indication: HYPOAESTHESIA
  3. NEURONTIN [Suspect]
     Indication: DIABETIC NEUROPATHY
     Dosage: 100 MG, 1X/DAY
     Dates: start: 20090615
  4. NEURONTIN [Suspect]
     Indication: HYPOAESTHESIA
  5. SYNTHROID [Concomitant]
     Dosage: UNK
  6. NEXIUM [Concomitant]
     Dosage: UNK
  7. GLUCOVANCE [Concomitant]
     Dosage: UNK
  8. CRESTOR [Concomitant]
     Dosage: UNK
  9. LOPRESSOR [Concomitant]
     Dosage: UNK
  10. POTASSIUM [Concomitant]
     Dosage: UNK
  11. CENTRUM [Concomitant]
     Dosage: UNK
  12. VITAMIN E [Concomitant]
     Dosage: UNK
  13. LISINOPRIL [Concomitant]
     Dosage: UNK
  14. DARVOCET [Concomitant]
     Dosage: UNK
  15. GLUCOPHAGE [Concomitant]
     Dosage: UNK
  16. VITAMIN TAB [Concomitant]
     Dosage: UNK
  17. GLYBURIDE [Concomitant]
     Dosage: UNK
  18. LEVOTHYROXINE [Concomitant]
     Dosage: UNK
  19. VALSARTAN [Concomitant]
     Dosage: UNK

REACTIONS (4)
  - DRUG INEFFECTIVE [None]
  - HEADACHE [None]
  - HYPOAESTHESIA [None]
  - SOMNOLENCE [None]
